FAERS Safety Report 10766159 (Version 1)
Quarter: 2015Q1

REPORT INFORMATION
  Report Type: Spontaneous
  Country: TN (occurrence: TN)
  Receive Date: 20150205
  Receipt Date: 20150205
  Transmission Date: 20150721
  Serious: Yes (Hospitalization)
  Sender: FDA-Public Use
  Company Number: TN-GE HEALTHCARE MEDICAL DIAGNOSTICS-OMPQ-PR-1501S-0074

PATIENT
  Sex: Male
  Weight: 78 kg

DRUGS (2)
  1. OMNIPAQUE [Suspect]
     Active Substance: IOHEXOL
     Indication: PRODUCT USED FOR UNKNOWN INDICATION
     Route: 037
     Dates: start: 20150128, end: 20150128
  2. OMNIPAQUE [Suspect]
     Active Substance: IOHEXOL
     Indication: DIAGNOSTIC PROCEDURE

REACTIONS (6)
  - Blood pressure decreased [Unknown]
  - Vertigo [Unknown]
  - Extrapyramidal disorder [Unknown]
  - Paraplegia [Unknown]
  - Hyperhidrosis [Unknown]
  - Oxygen saturation decreased [Unknown]

NARRATIVE: CASE EVENT DATE: 201501
